FAERS Safety Report 4658117-2 (Version None)
Quarter: 2005Q2

REPORT INFORMATION
  Report Type: 
  Country: None (occurrence: None)
  Receive Date: 20050504
  Receipt Date: 20040505
  Transmission Date: 20051028
  Serious: Yes (Other)
  Sender: FDA-Public Use
  Company Number: PHEH2004US05037

PATIENT
  Sex: Male

DRUGS (1)
  1. DIOVAN HCT [Suspect]
     Dosage: 160/25 MG/UNK, ORAL
     Route: 048
     Dates: start: 20040401

REACTIONS (4)
  - ANXIETY [None]
  - APATHY [None]
  - DEPRESSION [None]
  - FATIGUE [None]
